FAERS Safety Report 6552254-3 (Version None)
Quarter: 2010Q1

REPORT INFORMATION
  Report Type: 
  Country: None (occurrence: None)
  Receive Date: 20100121
  Receipt Date: 20100114
  Transmission Date: 20100710
  Serious: Yes (Hospitalization)
  Sender: FDA-Public Use
  Company Number: 09-002021

PATIENT
  Age: 36 Year
  Sex: Female

DRUGS (7)
  1. LOETRIN 24 FE (NORETHINDRONE ACETATE, ETHINYL LESTRADIOL, FERROUS FUMA [Suspect]
     Indication: CONTRACEPTION
     Dosage: 20/1000 UG, QD, ORAL
     Route: 048
     Dates: start: 20091213, end: 20091227
  2. HYDROCHLOROTHIAZIDE [Concomitant]
  3. METFORMIN HCL [Concomitant]
  4. DETROL LA [Concomitant]
  5. ADVAIR DISKUS 100/50 [Concomitant]
  6. CALTRATE (CALCIUM CARBONATE, COLECALCIFEROL) [Concomitant]
  7. TRAZODONE HCL [Concomitant]

REACTIONS (6)
  - DRUG EXPOSURE DURING PREGNANCY [None]
  - HEPATITIS B [None]
  - INAPPROPRIATE SCHEDULE OF DRUG ADMINISTRATION [None]
  - NAUSEA [None]
  - PREGNANCY ON ORAL CONTRACEPTIVE [None]
  - VOMITING [None]
